FAERS Safety Report 11528432 (Version 3)
Quarter: 2019Q1

REPORT INFORMATION
  Report Type: Spontaneous
  Country: US (occurrence: US)
  Receive Date: 20150921
  Receipt Date: 20190225
  Transmission Date: 20190417
  Serious: No
  Sender: FDA-Public Use
  Company Number: US-TEVA-589020USA

PATIENT
  Sex: Female

DRUGS (2)
  1. CLONAZEPAM TABLETS [Suspect]
     Active Substance: CLONAZEPAM
     Route: 065
  2. CLONAZEPAM TABLETS [Suspect]
     Active Substance: CLONAZEPAM
     Route: 065

REACTIONS (4)
  - Product availability issue [Unknown]
  - Abdominal distension [Unknown]
  - Product prescribing error [Unknown]
  - Gastrooesophageal reflux disease [Unknown]
